FAERS Safety Report 4932932-X (Version None)
Quarter: 2006Q1

REPORT INFORMATION
  Report Type: 
  Country: None (occurrence: None)
  Receive Date: 20060302
  Receipt Date: 20060302
  Transmission Date: 20060701
  Serious: Yes (Death, Hospitalization)
  Sender: FDA-Public Use
  Company Number: None

PATIENT
  Sex: Female
  Weight: 52.7 kg

DRUGS (4)
  1. CISPLATIN [Suspect]
     Indication: SMALL CELL LUNG CANCER STAGE UNSPECIFIED
     Dosage: 82 MG
     Dates: start: 20051129, end: 20051220
  2. CISPLATIN [Suspect]
     Indication: SMALL CELL LUNG CANCER STAGE UNSPECIFIED
     Dosage: 82 MG
     Dates: start: 20051220
  3. ETOPOSIDE [Suspect]
     Dosage: 150 MG
     Dates: start: 20051201, end: 20051222
  4. IRINOTECAN HCL [Suspect]
     Dosage: 82 MG
     Dates: start: 20051129, end: 20051220

REACTIONS (16)
  - ASTHENIA [None]
  - BEDRIDDEN [None]
  - BLOOD CULTURE POSITIVE [None]
  - BLOOD PRESSURE IMMEASURABLE [None]
  - CONFUSIONAL STATE [None]
  - COUGH [None]
  - DYSPNOEA [None]
  - HEPATIC ENZYME INCREASED [None]
  - HYPOTENSION [None]
  - LETHARGY [None]
  - MENTAL STATUS CHANGES [None]
  - NEUTROPHIL COUNT DECREASED [None]
  - PAIN [None]
  - PSEUDOMONAS INFECTION [None]
  - SEPSIS [None]
  - WHITE BLOOD CELL COUNT DECREASED [None]
